FAERS Safety Report 7105931-X (Version None)
Quarter: 2010Q4

REPORT INFORMATION
  Report Type: 
  Country: None (occurrence: None)
  Receive Date: 20101116
  Receipt Date: 20101105
  Transmission Date: 20110411
  Serious: Yes (Death, Other)
  Sender: FDA-Public Use
  Company Number: DE-BAYER-200925641GPV

PATIENT
  Age: 42 Year
  Sex: Female

DRUGS (1)
  1. SORAFENIB [Suspect]
     Indication: ACUTE MYELOID LEUKAEMIA
     Dosage: AS USED DOSE: 200-800 MG
     Route: 048

REACTIONS (3)
  - BRAIN HERNIATION [None]
  - NEUTROPENIA [None]
  - THROMBOCYTOPENIA [None]
